FAERS Safety Report 5588760-8 (Version None)
Quarter: 2008Q1

REPORT INFORMATION
  Report Type: 
  Country: None (occurrence: None)
  Receive Date: 20080111
  Receipt Date: 20080103
  Transmission Date: 20080703
  Serious: Yes (Other)
  Sender: FDA-Public Use
  Company Number: B0398872A

PATIENT
  Age: 44 Year
  Sex: Female

DRUGS (5)
  1. PAROXETINE [Suspect]
     Indication: DEPRESSION
     Route: 065
     Dates: start: 19990719
  2. PAROXETINE HYDROCHLORIDE [Suspect]
     Route: 048
  3. UNSPECIFIED ANTIBIOTIC [Concomitant]
     Route: 065
  4. AMITRIPTYLINE HCL [Concomitant]
     Dates: start: 19891021
  5. PROZAC [Concomitant]
     Dates: start: 19950328

REACTIONS (18)
  - AGGRESSION [None]
  - AGITATION [None]
  - CONFUSIONAL STATE [None]
  - CRYING [None]
  - DISTURBANCE IN ATTENTION [None]
  - DIZZINESS [None]
  - DRUG WITHDRAWAL SYNDROME [None]
  - FATIGUE [None]
  - HEADACHE [None]
  - HYPERHIDROSIS [None]
  - IRRITABILITY [None]
  - LETHARGY [None]
  - MEMORY IMPAIRMENT [None]
  - NIGHTMARE [None]
  - PARAESTHESIA [None]
  - PARANOIA [None]
  - TREMOR [None]
  - WEIGHT INCREASED [None]
